FAERS Safety Report 7916874-3 (Version None)
Quarter: 2011Q4

REPORT INFORMATION
  Report Type: 
  Country: None (occurrence: None)
  Receive Date: 20111116
  Receipt Date: 20111108
  Transmission Date: 20120403
  Serious: Yes (Hospitalization)
  Sender: FDA-Public Use
  Company Number: US-ASTELLAS-2011US007374

PATIENT
  Age: 66 Year
  Sex: Female
  Weight: 46 kg

DRUGS (2)
  1. MK-2206 [Suspect]
     Indication: NON-SMALL CELL LUNG CANCER
     Dosage: 45 MG, QOD
     Route: 048
     Dates: start: 20110816, end: 20111018
  2. ERLOTINIB HYDROCHLORIDE [Suspect]
     Indication: NON-SMALL CELL LUNG CANCER
     Dosage: 150 MG, UID/QD
     Route: 048
     Dates: start: 20110816, end: 20111101

REACTIONS (3)
  - DISEASE PROGRESSION [None]
  - DECREASED APPETITE [None]
  - ATRIAL FIBRILLATION [None]
